FAERS Safety Report 8043655-5 (Version None)
Quarter: 2012Q1

REPORT INFORMATION
  Report Type: 
  Country: None (occurrence: None)
  Receive Date: 20120112
  Receipt Date: 20120105
  Transmission Date: 20120608
  Serious: Yes (Other)
  Sender: FDA-Public Use
  Company Number: US-ASTRAZENECA-2012SE00965

PATIENT
  Sex: Female

DRUGS (3)
  1. CRESTOR [Suspect]
     Route: 048
     Dates: start: 20111205
  2. SYNTHROID [Concomitant]
  3. EXFORGE [Concomitant]

REACTIONS (4)
  - RIB FRACTURE [None]
  - CONCUSSION [None]
  - FALL [None]
  - DIZZINESS [None]
